FAERS Safety Report 15746100 (Version 6)
Quarter: 2020Q1

REPORT INFORMATION
  Report Type: Report from Study
  Country: US (occurrence: US)
  Receive Date: 20181220
  Receipt Date: 20200206
  Transmission Date: 20200409
  Serious: Yes (Hospitalization, Other)
  Sender: FDA-Public Use
  Company Number: US-ACTELION-A-US2017-164172

PATIENT
  Age: 66 Year
  Sex: Female

DRUGS (31)
  1. GABAPENTIN AAA [Concomitant]
  2. HYDROCHLOROTHIAZID [Concomitant]
     Active Substance: HYDROCHLOROTHIAZIDE
  3. HYDROCORTISONE. [Concomitant]
     Active Substance: HYDROCORTISONE
  4. MELOXICAM. [Concomitant]
     Active Substance: MELOXICAM
  5. BENTYL [Concomitant]
     Active Substance: DICYCLOMINE HYDROCHLORIDE
  6. BIOTIN [Concomitant]
     Active Substance: BIOTIN
  7. DICYCLOMINE [Concomitant]
     Active Substance: DICYCLOMINE HYDROCHLORIDE
  8. IRBESARTAN. [Concomitant]
     Active Substance: IRBESARTAN
  9. LEVALBUTEROL. [Concomitant]
     Active Substance: LEVALBUTEROL
  10. PROAIR HFA [Concomitant]
     Active Substance: ALBUTEROL SULFATE
  11. VITAMIN B12 [Concomitant]
     Active Substance: CYANOCOBALAMIN
  12. CURCUMIN [Concomitant]
     Active Substance: CURCUMIN
  13. MELATONIN [Concomitant]
     Active Substance: MELATONIN
  14. TRAMADOL. [Concomitant]
     Active Substance: TRAMADOL
  15. TRACLEER [Suspect]
     Active Substance: BOSENTAN
     Indication: PULMONARY ARTERIAL HYPERTENSION
     Dosage: 125 MG, BID
     Route: 048
     Dates: start: 20160127
  16. ARMOUR THYROID [Concomitant]
     Active Substance: THYROID, PORCINE
  17. CLEOCIN [Concomitant]
     Active Substance: CLINDAMYCIN PHOSPHATE
  18. ALBUTEROL. [Concomitant]
     Active Substance: ALBUTEROL
  19. MUPIROCIN. [Concomitant]
     Active Substance: MUPIROCIN
  20. PANTOPRAZOLE [Concomitant]
     Active Substance: PANTOPRAZOLE
  21. PROGESTERONE. [Concomitant]
     Active Substance: PROGESTERONE
  22. TRACLEER [Suspect]
     Active Substance: BOSENTAN
     Dosage: 62.5 MG, BID
     Route: 048
     Dates: start: 20150904
  23. AMLODIPINE [Concomitant]
     Active Substance: AMLODIPINE BESYLATE
  24. ADVAIR HFA [Concomitant]
     Active Substance: FLUTICASONE PROPIONATE\SALMETEROL XINAFOATE
  25. METRONIDAZOL [Concomitant]
     Active Substance: METRONIDAZOLE
  26. MILK THISTLE PLUS [Concomitant]
     Active Substance: DIETARY SUPPLEMENT\HERBALS\MILK THISTLE
  27. MOMETASONE [Concomitant]
     Active Substance: MOMETASONE
  28. MONTELUKAST [Concomitant]
     Active Substance: MONTELUKAST SODIUM
  29. POTASSIUM CHLORIDE. [Concomitant]
     Active Substance: POTASSIUM CHLORIDE
  30. TESTOSTERONE. [Concomitant]
     Active Substance: TESTOSTERONE
  31. BUPROPION HCL [Concomitant]
     Active Substance: BUPROPION HYDROCHLORIDE

REACTIONS (6)
  - Neck surgery [Unknown]
  - Orthopaedic procedure [Unknown]
  - Urinary tract infection [Recovered/Resolved]
  - Spinal operation [Unknown]
  - Hospitalisation [Unknown]
  - Unevaluable event [Unknown]

NARRATIVE: CASE EVENT DATE: 20171125
